FAERS Safety Report 8214337-1 (Version None)
Quarter: 2012Q1

REPORT INFORMATION
  Report Type: 
  Country: None (occurrence: None)
  Receive Date: 20120315
  Receipt Date: 20120315
  Transmission Date: 20120608
  Serious: Yes (Hospitalization)
  Sender: FDA-Public Use
  Company Number: None

PATIENT
  Age: 69 Year
  Sex: Male
  Weight: 139.5 kg

DRUGS (1)
  1. TOBRAMYCIN [Suspect]
     Indication: CONJUNCTIVITIS
     Dosage: 2 DROPS EVERY DAY EYE
     Route: 047
     Dates: start: 20110802, end: 20110809

REACTIONS (1)
  - CHEMICAL EYE INJURY [None]
